FAERS Safety Report 21102328 (Version 3)
Quarter: 2022Q3

REPORT INFORMATION
  Report Type: Report from Study
  Country: US (occurrence: US)
  Receive Date: 20220719
  Receipt Date: 20220722
  Transmission Date: 20221026
  Serious: Yes (Other)
  Sender: FDA-Public Use
  Company Number: NVSC2022US162732

PATIENT
  Sex: Male

DRUGS (1)
  1. KESIMPTA [Suspect]
     Active Substance: OFATUMUMAB
     Indication: Relapsing multiple sclerosis
     Dosage: UNK UNK, QMO
     Route: 058
     Dates: start: 202205

REACTIONS (2)
  - Hemiparesis [Unknown]
  - Malaise [Unknown]
